FAERS Safety Report 13446217 (Version 1)
Quarter: 2017Q2

REPORT INFORMATION
  Report Type: Spontaneous
  Country: FR (occurrence: FR)
  Receive Date: 20170417
  Receipt Date: 20170417
  Transmission Date: 20170830
  Serious: Yes (Hospitalization)
  Sender: FDA-Public Use
  Company Number: FR-ASTRAZENECA-2017SE38772

PATIENT
  Age: 31664 Day
  Sex: Male

DRUGS (7)
  1. OFLOCET [Suspect]
     Active Substance: OFLOXACIN
     Route: 065
  2. SECTRAL [Concomitant]
     Active Substance: ACEBUTOLOL HYDROCHLORIDE
  3. HYTACAND [Suspect]
     Active Substance: CANDESARTAN CILEXETIL\HYDROCHLOROTHIAZIDE
     Indication: HYPERTENSION
     Route: 048
     Dates: end: 20170329
  4. ZANIDIP [Concomitant]
     Active Substance: LERCANIDIPINE HYDROCHLORIDE
  5. VASTEN [Concomitant]
     Active Substance: PRAVASTATIN SODIUM
  6. KARDEGIC [Concomitant]
     Active Substance: ASPIRIN LYSINE
  7. ZOPICLONE [Concomitant]
     Active Substance: ZOPICLONE

REACTIONS (5)
  - Influenza [Unknown]
  - Calculus bladder [Unknown]
  - Renal failure [Recovering/Resolving]
  - Rash [Unknown]
  - Urosepsis [Unknown]

NARRATIVE: CASE EVENT DATE: 20170329
